FAERS Safety Report 9873201 (Version 2)
Quarter: 2015Q1

REPORT INFORMATION
  Report Type: Other
  Country: US (occurrence: US)
  Receive Date: 20140206
  Receipt Date: 20150203
  Transmission Date: 20150721
  Serious: No
  Sender: FDA-Public Use
  Company Number: US-ACORDA-ACO_101312_2014

PATIENT
  Sex: Female
  Weight: 85.71 kg

DRUGS (5)
  1. OXYBUTYNIN [Interacting]
     Active Substance: OXYBUTYNIN
     Indication: NEUROGENIC BLADDER
     Dosage: 5 MG, TID
     Route: 048
  2. BACLOFEN. [Suspect]
     Active Substance: BACLOFEN
     Indication: MUSCLE SPASTICITY
     Dosage: 20 MG, TID
     Route: 048
  3. AMPYRA [Suspect]
     Active Substance: DALFAMPRIDINE
     Indication: PRIMARY PROGRESSIVE MULTIPLE SCLEROSIS
     Dosage: 10 MG, BID
     Route: 048
     Dates: start: 20101008
  4. AMPYRA [Suspect]
     Active Substance: DALFAMPRIDINE
     Indication: PARAPARESIS
  5. REQUIP [Concomitant]
     Active Substance: ROPINIROLE HYDROCHLORIDE
     Indication: RESTLESS LEGS SYNDROME
     Dosage: 0.5 MG, QD
     Route: 048

REACTIONS (3)
  - Muscle spasticity [Recovered/Resolved]
  - Inhibitory drug interaction [Recovered/Resolved]
  - Drug ineffective [Unknown]
